FAERS Safety Report 5615939-9 (Version None)
Quarter: 2008Q1

REPORT INFORMATION
  Report Type: 
  Country: None (occurrence: None)
  Receive Date: 20080206
  Receipt Date: 20080130
  Transmission Date: 20080703
  Serious: Yes (Disabling, Other)
  Sender: FDA-Public Use
  Company Number: FR-PFIZER INC-2005071716

PATIENT
  Sex: Male

DRUGS (1)
  1. TAHOR [Suspect]
     Indication: HYPERTRIGLYCERIDAEMIA
     Dosage: DAILY DOSE:40MG-FREQ:UNKNOWN
     Route: 048

REACTIONS (9)
  - BLOOD CREATINE PHOSPHOKINASE INCREASED [None]
  - CYST [None]
  - FATIGUE [None]
  - HAEMATURIA [None]
  - LIPOMA [None]
  - MUSCLE SPASMS [None]
  - MYALGIA [None]
  - PAIN IN EXTREMITY [None]
  - RHABDOMYOLYSIS [None]
